FAERS Safety Report 5846080-8 (Version None)
Quarter: 2008Q3

REPORT INFORMATION
  Report Type: 
  Country: None (occurrence: None)
  Receive Date: 20080814
  Receipt Date: 20080804
  Transmission Date: 20090109
  Serious: Yes (Hospitalization, Other)
  Sender: FDA-Public Use
  Company Number: US-PFIZER INC-2008060586

PATIENT
  Sex: Male
  Weight: 83.9 kg

DRUGS (3)
  1. XALATAN [Suspect]
     Indication: GLAUCOMA
     Route: 047
  2. TIMOPTIC [Suspect]
     Indication: EYE INJURY
     Route: 047
     Dates: start: 20080101, end: 20080101
  3. TOPROL-XL [Concomitant]

REACTIONS (5)
  - CARDIAC FAILURE CONGESTIVE [None]
  - CARDIAC PACEMAKER INSERTION [None]
  - CHEST PAIN [None]
  - EYE INJURY [None]
  - FATIGUE [None]
